FAERS Safety Report 5151982-4 (Version None)
Quarter: 2006Q4

REPORT INFORMATION
  Report Type: 
  Country: None (occurrence: None)
  Receive Date: 20061109
  Receipt Date: 20061026
  Transmission Date: 20070319
  Serious: Yes (Death, Life-Threatening, Other)
  Sender: FDA-Public Use
  Company Number: 149203ISR

PATIENT
  Age: 32 Year
  Sex: Male

DRUGS (4)
  1. ETOPOSIDE [Suspect]
     Indication: TESTIS CANCER
     Dosage: INTRAVENOUS
     Route: 042
     Dates: start: 20060829, end: 20060829
  2. CYCLOPHOSPHAMIDE [Suspect]
     Indication: TESTIS CANCER
     Dosage: 1900 MG (500 MG)
     Dates: start: 20060829, end: 20060829
  3. DOXORUBICIN HYDROCHLORIDE [Suspect]
     Indication: TESTIS CANCER
     Dosage: INTRAVENOUS
     Route: 042
     Dates: start: 20060829, end: 20060829
  4. LENOGRASTIM [Suspect]
     Dosage: ORAL
     Route: 048
     Dates: start: 20060831, end: 20060907

REACTIONS (16)
  - ACUTE RESPIRATORY DISTRESS SYNDROME [None]
  - ANXIETY [None]
  - BRADYCARDIA [None]
  - BRAIN HERNIATION [None]
  - CEREBRAL ISCHAEMIA [None]
  - CHILLS [None]
  - DYSPNOEA [None]
  - ENTEROCOCCAL INFECTION [None]
  - ESCHERICHIA INFECTION [None]
  - HYPOKALAEMIA [None]
  - HYPOXIA [None]
  - INTERSTITIAL LUNG DISEASE [None]
  - PYREXIA [None]
  - TACHYCARDIA [None]
  - THROMBOCYTOPENIA [None]
  - WOUND SECRETION [None]
